FAERS Safety Report 25038288 (Version 3)
Quarter: 2025Q4

REPORT INFORMATION
  Report Type: Spontaneous
  Country: US (occurrence: US)
  Receive Date: 20250304
  Receipt Date: 20251017
  Transmission Date: 20260117
  Serious: Yes (Other)
  Sender: PFIZER
  Company Number: US-PFIZER INC-PV202500024844

PATIENT
  Age: 52 Year
  Sex: Female

DRUGS (10)
  1. DOCETAXEL [Suspect]
     Active Substance: DOCETAXEL
     Indication: Breast cancer metastatic
     Dosage: 120 MG, CYCLIC (EVERY 3 WEEKS, NUMBER OF CYCLES 06)
     Dates: start: 20190530
  2. DOCETAXEL [Suspect]
     Active Substance: DOCETAXEL
     Dosage: 120 MG, CYCLIC (EVERY 3 WEEKS, NUMBER OF CYCLES 06)
     Dates: start: 20190620
  3. DOCETAXEL [Suspect]
     Active Substance: DOCETAXEL
     Dosage: 120 MG, CYCLIC (EVERY 3 WEEKS, NUMBER OF CYCLES 06)
     Dates: start: 20190711
  4. DOCETAXEL [Suspect]
     Active Substance: DOCETAXEL
     Dosage: 120 MG, CYCLIC (EVERY 3 WEEKS, NUMBER OF CYCLES 06)
     Dates: start: 20190801
  5. DOCETAXEL [Suspect]
     Active Substance: DOCETAXEL
     Dosage: 120 MG, CYCLIC (EVERY 3 WEEKS, NUMBER OF CYCLES 06)
     Dates: start: 20190822
  6. DOCETAXEL [Suspect]
     Active Substance: DOCETAXEL
     Dosage: 120 MG, CYCLIC (EVERY 3 WEEKS, NUMBER OF CYCLES 06)
     Dates: start: 20190912
  7. TAXOTERE [Concomitant]
     Active Substance: DOCETAXEL
     Indication: Chemotherapy
     Dosage: UNK
  8. CARBOPLATIN [Concomitant]
     Active Substance: CARBOPLATIN
     Indication: Chemotherapy
     Dosage: UNK
  9. HERCEPTIN [Concomitant]
     Active Substance: TRASTUZUMAB
     Indication: Chemotherapy
     Dosage: UNK
  10. PERJETA [Concomitant]
     Active Substance: PERTUZUMAB
     Indication: Chemotherapy
     Dosage: UNK

REACTIONS (6)
  - Lacrimation increased [Not Recovered/Not Resolved]
  - Anxiety [Unknown]
  - Depression [Unknown]
  - Panic disorder [Unknown]
  - Post-traumatic stress disorder [Unknown]
  - Psychological trauma [Unknown]

NARRATIVE: CASE EVENT DATE: 20190101
